FAERS Safety Report 10450264 (Version 1)
Quarter: 2014Q3

REPORT INFORMATION
  Report Type: Spontaneous
  Country: US (occurrence: None)
  Receive Date: 20140910
  Receipt Date: 20140910
  Transmission Date: 20150326
  Serious: No
  Sender: FDA-Public Use
  Company Number: 13099ADE

PATIENT
  Age: 70 Year
  Sex: Male

DRUGS (11)
  1. TYLENOL [Concomitant]
     Active Substance: ACETAMINOPHEN
  2. NIASPAN (NICOTINIC ACID) [Concomitant]
  3. METFORMIN HYDROCHLORIDE. [Concomitant]
     Active Substance: METFORMIN HYDROCHLORIDE
  4. ALLOPURINOL. [Concomitant]
     Active Substance: ALLOPURINOL
  5. FENOFIBRATE. [Concomitant]
     Active Substance: FENOFIBRATE
  6. GABAPENTIN. [Concomitant]
     Active Substance: GABAPENTIN
  7. LOSARTAN (LOSARTAN POTASSIUM) [Concomitant]
  8. HYDROCHLOROTHIAZIDE. [Concomitant]
     Active Substance: HYDROCHLOROTHIAZIDE
  9. GLUCOPHAGE (METFORMIN HYDROCHLORIDE) [Concomitant]
  10. POTASSIUM CITRATE 10 MEQ (POTASSIUM CITRATE TABLETS) [Suspect]
     Active Substance: POTASSIUM CITRATE
     Indication: NEPHROLITHIASIS
     Dosage: 1 TAB PO BID, ORAL
     Route: 048
  11. METOPROLOL (METOPROLOL TARTRATE) [Concomitant]
     Active Substance: METOPROLOL TARTRATE

REACTIONS (2)
  - Foreign body [None]
  - Dysphagia [None]

NARRATIVE: CASE EVENT DATE: 20131004
